FAERS Safety Report 9095966 (Version 1)
Quarter: 2013Q1

REPORT INFORMATION
  Report Type: Spontaneous
  Country: US (occurrence: US)
  Receive Date: 20130204
  Receipt Date: 20130204
  Transmission Date: 20140127
  Serious: No
  Sender: FDA-Public Use
  Company Number: US-009507513-1301USA012905

PATIENT
  Sex: Female

DRUGS (4)
  1. FOSAMAX [Suspect]
     Indication: OSTEOPOROSIS
     Dosage: ONCE WEEKLY ON SATURDAY
     Route: 048
     Dates: start: 201212
  2. BENICAR [Suspect]
  3. NORVASC [Concomitant]
  4. METFORMIN [Concomitant]

REACTIONS (1)
  - Dizziness [Unknown]
